FAERS Safety Report 6068713-6 (Version None)
Quarter: 2009Q1

REPORT INFORMATION
  Report Type: 
  Country: None (occurrence: None)
  Receive Date: 20090206
  Receipt Date: 20090202
  Transmission Date: 20090719
  Serious: Yes (Hospitalization)
  Sender: FDA-Public Use
  Company Number: B0557030A

PATIENT
  Age: 31 Year
  Sex: Male

DRUGS (1)
  1. CLAMOXYL [Suspect]
     Indication: BRONCHITIS
     Route: 065
     Dates: start: 20071101

REACTIONS (3)
  - ANGIOEDEMA [None]
  - OROPHARYNGEAL DISCOMFORT [None]
  - URTICARIA [None]
